FAERS Safety Report 22152410 (Version 1)
Quarter: 2023Q1

REPORT INFORMATION
  Report Type: Spontaneous
  Country: GB (occurrence: GB)
  Receive Date: 20230329
  Receipt Date: 20230329
  Transmission Date: 20230418
  Serious: Yes (Life-Threatening, Hospitalization, Other)
  Sender: FDA-Public Use
  Company Number: GB-HAMELN-2023HAM000273

PATIENT
  Age: 57 Year
  Sex: Male

DRUGS (4)
  1. CEFUROXIME SODIUM [Suspect]
     Active Substance: CEFUROXIME SODIUM
     Indication: Product used for unknown indication
     Dosage: UNK
     Route: 042
     Dates: start: 202210, end: 202210
  2. DEXAMETHASONE [Suspect]
     Active Substance: DEXAMETHASONE
     Indication: Premedication
     Dosage: UNK
     Route: 042
     Dates: start: 202210, end: 202210
  3. REMIFENTANIL [Suspect]
     Active Substance: REMIFENTANIL
     Indication: Induction of anaesthesia
     Dosage: UNK
     Route: 042
     Dates: start: 202210, end: 202210
  4. ROCURONIUM [Suspect]
     Active Substance: ROCURONIUM BROMIDE
     Indication: Induction of anaesthesia
     Dosage: UNK
     Route: 042
     Dates: start: 202210, end: 202210

REACTIONS (1)
  - Anaphylactic reaction [Recovered/Resolved]

NARRATIVE: CASE EVENT DATE: 20221001
